FAERS Safety Report 16858139 (Version 1)
Quarter: 2019Q3

REPORT INFORMATION
  Report Type: Report from Study
  Country: US (occurrence: US)
  Receive Date: 20190926
  Receipt Date: 20190926
  Transmission Date: 20191005
  Serious: Yes (Other)
  Sender: FDA-Public Use
  Company Number: US-BAYER-2019-175028

PATIENT
  Age: 40 Year
  Sex: Male
  Weight: 143.92 kg

DRUGS (4)
  1. RIVAROXABAN [Suspect]
     Active Substance: RIVAROXABAN
     Indication: PULMONARY EMBOLISM
     Dosage: 20 MG
     Route: 048
     Dates: start: 201909
  2. RIVAROXABAN [Suspect]
     Active Substance: RIVAROXABAN
     Indication: DEEP VEIN THROMBOSIS
     Dosage: 15 MG
     Route: 048
     Dates: start: 20190826, end: 201909
  3. PREDNISONE. [Concomitant]
     Active Substance: PREDNISONE
     Indication: INTERVERTEBRAL DISC PROTRUSION
     Dosage: 1 DF, QD
     Route: 048
     Dates: start: 201809
  4. BAYER LOW DOSE [Suspect]
     Active Substance: ASPIRIN
     Indication: CEREBROVASCULAR ACCIDENT
     Dosage: 1 DF, QD
     Route: 048
     Dates: start: 2018

REACTIONS (2)
  - Epistaxis [Recovered/Resolved]
  - Pain in extremity [Not Recovered/Not Resolved]

NARRATIVE: CASE EVENT DATE: 20190919
